FAERS Safety Report 10180190 (Version 1)
Quarter: 2014Q2

REPORT INFORMATION
  Report Type: Spontaneous
  Country: US (occurrence: US)
  Receive Date: 20140519
  Receipt Date: 20140519
  Transmission Date: 20141212
  Serious: No
  Sender: FDA-Public Use
  Company Number: US-AMGEN INC.-USASP2013089079

PATIENT
  Age: 64 Year
  Sex: Female

DRUGS (11)
  1. PROLIA [Suspect]
     Indication: OSTEOPOROSIS POSTMENOPAUSAL
     Dosage: 60 MG, UNK
     Route: 065
     Dates: start: 201201
  2. ALBUTEROL                          /00139501/ [Concomitant]
     Indication: UPPER RESPIRATORY TRACT CONGESTION
     Dosage: AS NEEDED
  3. FLEXERIL                           /00428402/ [Concomitant]
     Indication: ARTHRITIS
     Dosage: AS NEEDED
  4. CALCIUM WITH VITAMIN D             /00944201/ [Concomitant]
     Dosage: 1200 MG, UNK
  5. ZOCOR [Concomitant]
     Dosage: 40 MG, QD
  6. CYMBALTA [Concomitant]
     Indication: PAIN
     Dosage: 60 MG, HS
  7. VICODIN ES [Concomitant]
     Dosage: AS NEEDED
  8. SYNTHROID [Concomitant]
     Dosage: 125 MUG, QD
  9. TRILIPIX [Concomitant]
     Indication: HIGH DENSITY LIPOPROTEIN ABNORMAL
     Dosage: 135 MG, QD
  10. HYDROCHLOROTHIAZIDE [Concomitant]
     Indication: PROPHYLAXIS
  11. POTASSIUM [Concomitant]
     Dosage: 20 MEQ, AS NECESSARY

REACTIONS (3)
  - Loose tooth [Unknown]
  - Hypertension [Unknown]
  - Muscle spasms [Unknown]
